FAERS Safety Report 8420507-X (Version None)
Quarter: 2012Q2

REPORT INFORMATION
  Report Type: 
  Country: None (occurrence: None)
  Receive Date: 20120608
  Receipt Date: 20120531
  Transmission Date: 20120825
  Serious: Yes (Hospitalization)
  Sender: FDA-Public Use
  Company Number: US-BIOGENIDEC-2010BI040547

PATIENT
  Age: 53 Year
  Sex: Female

DRUGS (1)
  1. TYSABRI [Suspect]
     Indication: MULTIPLE SCLEROSIS
     Route: 042
     Dates: start: 20100122, end: 20111024

REACTIONS (14)
  - ROTATOR CUFF SYNDROME [None]
  - FATIGUE [None]
  - CEREBROVASCULAR ACCIDENT [None]
  - VISION BLURRED [None]
  - RASH PAPULAR [None]
  - MUSCLE SPASMS [None]
  - EAR HAEMORRHAGE [None]
  - MULTIPLE SCLEROSIS [None]
  - INTRACARDIAC THROMBUS [None]
  - URINARY TRACT INFECTION [None]
  - OEDEMA PERIPHERAL [None]
  - CHEST PAIN [None]
  - TREMOR [None]
  - EAR PAIN [None]
